FAERS Safety Report 10430210 (Version 1)
Quarter: 2014Q3

REPORT INFORMATION
  Report Type: Spontaneous
  Country: ES (occurrence: None)
  Receive Date: 20140902
  Receipt Date: 20140902
  Transmission Date: 20150326
  Serious: Yes (Life-Threatening, Hospitalization, Other)
  Sender: FDA-Public Use
  Company Number: 2014AP004267

PATIENT
  Age: 71 Year
  Sex: Male

DRUGS (6)
  1. ACENOCUMAROL [Suspect]
     Active Substance: ACENOCOUMAROL
     Indication: ATRIAL FIBRILLATION
     Route: 048
     Dates: end: 20140203
  2. FUROSEMIDE. [Suspect]
     Active Substance: FUROSEMIDE
     Indication: CONGESTIVE CARDIOMYOPATHY
     Route: 048
     Dates: start: 2010, end: 20140203
  3. ENALAPRIL [Suspect]
     Active Substance: ENALAPRIL
     Indication: HYPERTENSION
     Route: 048
     Dates: start: 2010, end: 20140203
  4. NEBIVOLOL [Suspect]
     Active Substance: NEBIVOLOL
     Indication: CONGESTIVE CARDIOMYOPATHY
     Route: 048
     Dates: start: 2010, end: 20140203
  5. EPLERENONE. [Suspect]
     Active Substance: EPLERENONE
     Indication: HYPERTENSION
     Route: 048
     Dates: start: 201205, end: 20140203
  6. DIGOXIN. [Concomitant]
     Active Substance: DIGOXIN
     Indication: ATRIAL FIBRILLATION
     Route: 048
     Dates: end: 20140203

REACTIONS (8)
  - Hyperkalaemia [None]
  - Mitral valve incompetence [None]
  - Left atrial dilatation [None]
  - Ventricular hypokinesia [None]
  - Bundle branch block right [None]
  - Ventricular tachycardia [None]
  - Left ventricular dysfunction [None]
  - Drug interaction [None]

NARRATIVE: CASE EVENT DATE: 20140203
